FAERS Safety Report 5959087-7 (Version None)
Quarter: 2008Q4

REPORT INFORMATION
  Report Type: 
  Country: None (occurrence: None)
  Receive Date: 20081120
  Receipt Date: 20071106
  Transmission Date: 20090506
  Serious: No
  Sender: FDA-Public Use
  Company Number: A0691725A

PATIENT
  Age: 47 Year
  Sex: Male

DRUGS (4)
  1. BUPROPION HYDROCHLORIDE [Suspect]
     Indication: DEPRESSION
     Dosage: 150MG TWICE PER DAY
     Route: 048
  2. OXYCODONE HCL [Concomitant]
  3. VALIUM [Concomitant]
  4. PAXIL [Concomitant]

REACTIONS (2)
  - ABNORMAL DREAMS [None]
  - ANGER [None]
